FAERS Safety Report 10520541 (Version 1)
Quarter: 2014Q4

REPORT INFORMATION
  Report Type: Spontaneous
  Country: ZA (occurrence: ZA)
  Receive Date: 20141015
  Receipt Date: 20141015
  Transmission Date: 20150528
  Serious: Yes (Other)
  Sender: FDA-Public Use
  Company Number: ZA-PFIZER INC-2014279208

PATIENT
  Sex: Male

DRUGS (4)
  1. CARDICOR [Concomitant]
     Active Substance: BISOPROLOL
     Dosage: 1 DF, DAILY
     Route: 048
  2. BRILINTA [Interacting]
     Active Substance: TICAGRELOR
     Dosage: 90 MG, 2X/DAY
     Route: 048
     Dates: start: 20140909, end: 20141006
  3. ASPAVOR [Suspect]
     Active Substance: ATORVASTATIN
     Indication: HYPERLIPIDAEMIA
     Dosage: 40 MG, 1X/DAY AT NIGHT
     Route: 048
  4. ASPIRIN. [Concomitant]
     Active Substance: ASPIRIN
     Dosage: 100 MG, DAILY
     Route: 048

REACTIONS (2)
  - Drug interaction [Recovered/Resolved]
  - Haematochezia [Recovered/Resolved]

NARRATIVE: CASE EVENT DATE: 20141006
